FAERS Safety Report 5514004-9 (Version None)
Quarter: 2007Q4

REPORT INFORMATION
  Report Type: 
  Country: None (occurrence: None)
  Receive Date: 20071107
  Receipt Date: 20060918
  Transmission Date: 20080405
  Serious: Yes (Hospitalization)
  Sender: FDA-Public Use
  Company Number: 2006RL000335

PATIENT
  Age: 63 Year
  Sex: Male
  Weight: 89.3586 kg

DRUGS (12)
  1. RYTHMOL SR [Suspect]
     Indication: ATRIAL FIBRILLATION
     Dosage: 225 MG;BID;PO
     Route: 048
     Dates: start: 20050601, end: 20060701
  2. LIPITOR [Concomitant]
  3. TRAZODONE HCL [Concomitant]
  4. VITAMIN CAP [Concomitant]
  5. GLUCOSAMINE/CHONDROITIN /01625901/ [Concomitant]
  6. ZETIA [Concomitant]
  7. COUMADIN [Concomitant]
  8. ZOLOFT [Concomitant]
  9. XANAX [Concomitant]
  10. ACIPHEX [Concomitant]
  11. HYTRIN [Concomitant]
  12. ASPIRIN [Concomitant]

REACTIONS (8)
  - ATRIAL FIBRILLATION [None]
  - ATRIAL FLUTTER [None]
  - DIZZINESS [None]
  - DRUG INEFFECTIVE [None]
  - HEART RATE IRREGULAR [None]
  - INTERNATIONAL NORMALISED RATIO DECREASED [None]
  - PALPITATIONS [None]
  - TACHYCARDIA [None]
